FAERS Safety Report 19470414 (Version 2)
Quarter: 2022Q1

REPORT INFORMATION
  Report Type: Spontaneous
  Country: US (occurrence: US)
  Receive Date: 20210628
  Receipt Date: 20220119
  Transmission Date: 20220423
  Serious: Yes (Other)
  Sender: FDA-Public Use
  Company Number: US-PFIZER INC-2021531635

PATIENT
  Age: 63 Year
  Sex: Male

DRUGS (3)
  1. EUCRISA [Suspect]
     Active Substance: CRISABOROLE
     Indication: Psoriasis
     Dosage: UNK
  2. EUCRISA [Suspect]
     Active Substance: CRISABOROLE
     Indication: Psoriasis
     Dosage: 2 %, 2X/DAY (BID, 30 DAYS, 4 REFILLS)
     Route: 061
  3. EUCRISA [Suspect]
     Active Substance: CRISABOROLE
     Dosage: 2 %, 1X/DAY
     Route: 061

REACTIONS (15)
  - Brain injury [Unknown]
  - Off label use [Unknown]
  - Skin mass [Unknown]
  - Skin lesion [Unknown]
  - Haemangioma of skin [Unknown]
  - Seborrhoea [Unknown]
  - Seborrhoeic keratosis [Unknown]
  - Actinic elastosis [Unknown]
  - Benign neoplasm of skin [Unknown]
  - Lentigo [Unknown]
  - Ephelides [Unknown]
  - Melanocytic naevus [Unknown]
  - Melanocytic naevus [Unknown]
  - Memory impairment [Unknown]
  - Frustration tolerance decreased [Unknown]
